FAERS Safety Report 16884360 (Version 1)
Quarter: 2019Q4

REPORT INFORMATION
  Report Type: Report from Study
  Country: US (occurrence: US)
  Receive Date: 20191004
  Receipt Date: 20191004
  Transmission Date: 20200122
  Serious: Yes (Other)
  Sender: FDA-Public Use
  Company Number: US-ROCHE-2416892

PATIENT
  Age: 58 Year
  Sex: Female

DRUGS (1)
  1. XOLAIR [Suspect]
     Active Substance: OMALIZUMAB
     Indication: IDIOPATHIC URTICARIA
     Route: 065
     Dates: start: 201906

REACTIONS (9)
  - Seizure [Recovered/Resolved]
  - Bronchitis [Not Recovered/Not Resolved]
  - Blood glucose increased [Recovered/Resolved]
  - Swelling [Recovered/Resolved]
  - Dizziness [Recovered/Resolved]
  - Ill-defined disorder [Recovered/Resolved]
  - Fall [Unknown]
  - Intervertebral disc protrusion [Not Recovered/Not Resolved]
  - Vertigo [Recovered/Resolved]

NARRATIVE: CASE EVENT DATE: 20190910
